FAERS Safety Report 4918796-9 (Version None)
Quarter: 2006Q1

REPORT INFORMATION
  Report Type: 
  Country: None (occurrence: None)
  Receive Date: 20060221
  Receipt Date: 20060221
  Transmission Date: 20060701
  Serious: Yes (Death, Hospitalization)
  Sender: FDA-Public Use
  Company Number: None

PATIENT
  Sex: Female
  Weight: 95.4 kg

DRUGS (1)
  1. THALIDOMIDE (THALOMID) [Suspect]
     Indication: MALIGNANT MELANOMA
     Dosage: 6100 MG
     Dates: start: 20060104, end: 20060128

REACTIONS (3)
  - MALIGNANT PLEURAL EFFUSION [None]
  - METASTATIC MALIGNANT MELANOMA [None]
  - PAIN [None]
